FAERS Safety Report 10060404 (Version 3)
Quarter: 2014Q2

REPORT INFORMATION
  Report Type: Spontaneous
  Country: FR (occurrence: FR)
  Receive Date: 20140404
  Receipt Date: 20140530
  Transmission Date: 20141212
  Serious: Yes (Other)
  Sender: FDA-Public Use
  Company Number: FR-GILEAD-2014-0098642

PATIENT
  Sex: 0
  Weight: 65 kg

DRUGS (7)
  1. HEPSERA [Suspect]
     Indication: HEPATITIS B
     Dosage: 10 MG, 1 DAY/2 TO 1 DAY/3
     Route: 065
     Dates: start: 2006
  2. ISENTRESS [Concomitant]
     Dosage: 400 MG, UNK
     Route: 065
     Dates: start: 2010
  3. NORVIR [Concomitant]
     Dosage: 100 MG, QD
     Route: 065
  4. TELZIR [Concomitant]
     Dosage: 700 MG, BID
     Route: 065
  5. APROVEL [Concomitant]
     Route: 065
  6. CALCIDIA [Concomitant]
     Route: 065
  7. DECORENO [Concomitant]
     Dosage: UNK, TID
     Route: 065

REACTIONS (2)
  - Hepatitis B DNA increased [Unknown]
  - Drug ineffective [Unknown]
